FAERS Safety Report 5503632-2 (Version None)
Quarter: 2007Q4

REPORT INFORMATION
  Report Type: 
  Country: None (occurrence: None)
  Receive Date: 20071101
  Receipt Date: 20071023
  Transmission Date: 20080405
  Serious: Yes (Hospitalization)
  Sender: FDA-Public Use
  Company Number: KR-SANOFI-SYNTHELABO-A01200711050

PATIENT
  Age: 56 Year
  Sex: Male

DRUGS (1)
  1. ALFUZOSIN HCL [Suspect]
     Indication: BENIGN PROSTATIC HYPERPLASIA
     Route: 048

REACTIONS (6)
  - CHOLESTASIS [None]
  - EOSINOPHILIA [None]
  - JAUNDICE [None]
  - LIVER INJURY [None]
  - PRURITUS [None]
  - RASH ERYTHEMATOUS [None]
